FAERS Safety Report 9157980 (Version 1)
Quarter: 2013Q1

REPORT INFORMATION
  Report Type: Report from Study
  Country: US (occurrence: US)
  Receive Date: 20130312
  Receipt Date: 20130312
  Transmission Date: 20140127
  Serious: Yes (Other)
  Sender: FDA-Public Use
  Company Number: US-ABBOTT-13P-163-1058757-00

PATIENT
  Sex: Female
  Weight: 104.42 kg

DRUGS (6)
  1. HUMIRA [Suspect]
     Indication: RHEUMATOID ARTHRITIS
     Route: 058
     Dates: start: 2010, end: 2011
  2. HUMIRA [Suspect]
     Indication: PSORIASIS
     Route: 058
     Dates: start: 2011, end: 201212
  3. NEURONTIN [Concomitant]
     Indication: PRODUCT USED FOR UNKNOWN INDICATION
  4. PROZAC [Concomitant]
     Indication: ANXIETY
  5. UNKNOWN TOPICAL CREAM [Concomitant]
     Indication: PSORIASIS
     Route: 061
  6. ATIVAN [Concomitant]
     Indication: ANXIETY

REACTIONS (1)
  - Lipoma [Recovered/Resolved]
